FAERS Safety Report 10042471 (Version 2)
Quarter: 2014Q2

REPORT INFORMATION
  Report Type: Spontaneous
  Country: US (occurrence: US)
  Receive Date: 20140327
  Receipt Date: 20140402
  Transmission Date: 20141212
  Serious: No
  Sender: FDA-Public Use
  Company Number: US-PFIZER INC-2014085131

PATIENT
  Age: 48 Year
  Sex: Female

DRUGS (3)
  1. LYRICA [Suspect]
     Indication: FIBROMYALGIA
     Dosage: 100 MG, 2X/DAY (MORNING AND NIGHT)
  2. LYRICA [Suspect]
     Dosage: 75 MG, 3X/DAY (ONE IN THE MORNING, ONE MID-DAY AND THEN AT NIGHT)
  3. CYMBALTA [Concomitant]
     Indication: FIBROMYALGIA
     Dosage: UNK

REACTIONS (5)
  - Weight increased [Unknown]
  - Feeling abnormal [Unknown]
  - Thinking abnormal [Unknown]
  - Fatigue [Unknown]
  - Metabolic disorder [Unknown]
